FAERS Safety Report 6021380-X (Version None)
Quarter: 2008Q4

REPORT INFORMATION
  Report Type: 
  Country: None (occurrence: None)
  Receive Date: 20081229
  Receipt Date: 20081215
  Transmission Date: 20090506
  Serious: Yes (Life-Threatening)
  Sender: FDA-Public Use
  Company Number: B0550375A

PATIENT
  Age: 72 Year
  Sex: Female

DRUGS (8)
  1. DEROXAT [Suspect]
     Indication: DEPRESSION
     Dosage: 10MG TWICE PER DAY
     Route: 048
  2. TAVANIC [Suspect]
     Dosage: 500MG UNKNOWN
     Route: 042
     Dates: start: 20080910, end: 20080912
  3. TAVANIC [Suspect]
     Dosage: 500MG PER DAY
     Route: 048
     Dates: start: 20080913, end: 20080913
  4. COVERSYL [Concomitant]
     Dosage: 4MG PER DAY
     Route: 048
  5. KARDEGIC [Concomitant]
     Dosage: 160MG PER DAY
     Route: 048
  6. INEGY [Concomitant]
     Dosage: 1UNIT PER DAY
     Route: 048
  7. EUPANTOL [Concomitant]
     Indication: PROPHYLAXIS
     Dosage: 20MG PER DAY
     Route: 048
  8. ALPRAZOLAM [Concomitant]
     Indication: ANXIETY
     Dosage: .5MG UNKNOWN
     Route: 048

REACTIONS (4)
  - BRADYCARDIA [None]
  - DRUG INTERACTION [None]
  - ELECTROCARDIOGRAM QT PROLONGED [None]
  - VENTRICULAR EXTRASYSTOLES [None]
